FAERS Safety Report 4640257-5 (Version None)
Quarter: 2005Q2

REPORT INFORMATION
  Report Type: 
  Country: None (occurrence: None)
  Receive Date: 20050420
  Receipt Date: 20050411
  Transmission Date: 20051028
  Serious: Yes (Other)
  Sender: FDA-Public Use
  Company Number: BR-GLAXOSMITHKLINE-A0554098A

PATIENT
  Age: 74 Year
  Sex: Female

DRUGS (2)
  1. AEROLIN [Suspect]
     Indication: ASTHMA
     Route: 055
  2. ANTI HYPERTENSIVE [Concomitant]
     Route: 065

REACTIONS (3)
  - BREAST PAIN [None]
  - HYPERTENSION [None]
  - TREMOR [None]
